FAERS Safety Report 17036135 (Version 1)
Quarter: 2019Q4

REPORT INFORMATION
  Report Type: Spontaneous
  Country: US (occurrence: US)
  Receive Date: 20191114
  Receipt Date: 20191114
  Transmission Date: 20200122
  Serious: No
  Sender: FDA-Public Use
  Company Number: None

PATIENT
  Age: 45 Year
  Sex: Male

DRUGS (3)
  1. PIPERACILLIN SOD TAZOBACTAM [Suspect]
     Active Substance: PIPERACILLIN SODIUM\TAZOBACTAM SODIUM
     Indication: OSTEOMYELITIS
     Route: 042
     Dates: start: 20191015, end: 20191108
  2. STERILE WATER [Suspect]
     Active Substance: WATER
     Indication: OSTEOMYELITIS
     Route: 042
     Dates: start: 20191015, end: 20191108
  3. DAPTOMYCIN. [Concomitant]
     Active Substance: DAPTOMYCIN
     Dates: start: 20191015, end: 20191112

REACTIONS (3)
  - Myalgia [None]
  - Headache [None]
  - Chills [None]

NARRATIVE: CASE EVENT DATE: 20191104
